FAERS Safety Report 5261824-4 (Version None)
Quarter: 2007Q1

REPORT INFORMATION
  Report Type: 
  Country: None (occurrence: None)
  Receive Date: 20070310
  Receipt Date: 20070228
  Transmission Date: 20070707
  Serious: No
  Sender: FDA-Public Use
  Company Number: 2006UW04575

PATIENT
  Age: 40 Year
  Sex: Female
  Weight: 130.5 kg

DRUGS (11)
  1. SEROQUEL [Suspect]
     Indication: SCHIZOPHRENIA
     Dosage: 25 MG - 100 MG
     Route: 048
     Dates: start: 20021001, end: 20021101
  2. SEROQUEL [Suspect]
     Indication: BIPOLAR DISORDER
     Dosage: 25 MG - 100 MG
     Route: 048
     Dates: start: 20021001, end: 20021101
  3. SEROQUEL [Suspect]
     Indication: DEPRESSION
     Dosage: 25 MG - 100 MG
     Route: 048
     Dates: start: 20021001, end: 20021101
  4. SEROQUEL [Suspect]
     Dosage: 25 MG - 100 MG
     Route: 048
     Dates: start: 20040101, end: 20040201
  5. SEROQUEL [Suspect]
     Dosage: 25 MG - 100 MG
     Route: 048
     Dates: start: 20040101, end: 20040201
  6. SEROQUEL [Suspect]
     Dosage: 25 MG - 100 MG
     Route: 048
     Dates: start: 20040101, end: 20040201
  7. ZYPREXA [Suspect]
     Dosage: 10 MG - 15 MG
     Dates: start: 20021201, end: 20040701
  8. RISPERDAL [Suspect]
     Indication: SCHIZOPHRENIA
     Dates: start: 20050201, end: 20050401
  9. RISPERDAL [Suspect]
     Indication: BIPOLAR DISORDER
     Dates: start: 20050201, end: 20050401
  10. RISPERDAL [Suspect]
     Indication: DEPRESSION
     Dates: start: 20050201, end: 20050401
  11. GEODON [Suspect]
     Dosage: 80 MG - 100 MG
     Dates: start: 20021201, end: 20050401

REACTIONS (3)
  - CHEST PAIN [None]
  - DIABETES MELLITUS [None]
  - OBESITY [None]
